FAERS Safety Report 4689779-1 (Version None)
Quarter: 2005Q2

REPORT INFORMATION
  Report Type: 
  Country: None (occurrence: None)
  Receive Date: 20050614
  Receipt Date: 20050315
  Transmission Date: 20051028
  Serious: Yes (Disabling, Other)
  Sender: FDA-Public Use
  Company Number: GB-BRISTOL-MYERS SQUIBB COMPANY-12906269

PATIENT
  Age: 56 Year
  Sex: Male

DRUGS (12)
  1. ABILIFY [Suspect]
     Indication: SCHIZOPHRENIA
     Dosage: DOSE RANGED FROM 15 TO 30 MG/DAY
     Route: 048
     Dates: start: 20040728, end: 20050419
  2. TEMAZEPAM [Concomitant]
     Indication: INSOMNIA
     Route: 048
  3. VITAMIN B COMPLEX CAP [Concomitant]
     Indication: ALCOHOLISM
     Route: 048
     Dates: start: 20041102
  4. THIAMINE HCL [Concomitant]
     Indication: ALCOHOLISM
     Dosage: 100 TO 300 MG/DAY
     Route: 048
     Dates: start: 20041102
  5. VIOXX [Concomitant]
     Dosage: REC'D ON 25-MAR-04, 12-MAY-04, 13-JUL-04 AND 19-AUG-04.
     Dates: end: 20041201
  6. FLUOXETINE [Concomitant]
     Indication: DEPRESSION
     Dosage: 40-60 MG/DAY
     Route: 048
     Dates: start: 20041102
  7. PROCHLORPERAZINE MALEATE [Concomitant]
     Dates: start: 20041111
  8. FLUPENTIXOL [Concomitant]
     Dates: start: 20041101
  9. SENNA [Concomitant]
     Dates: start: 20040819
  10. LACTULOSE [Concomitant]
     Dosage: 3.35G/5ML: 15 ML TWICE DAILY
     Route: 048
     Dates: start: 20040819
  11. LOCORTEN [Concomitant]
     Dates: start: 20040819
  12. ZOPICLONE [Concomitant]
     Route: 048
     Dates: start: 20040804

REACTIONS (3)
  - CARDIAC FAILURE CONGESTIVE [None]
  - INSOMNIA [None]
  - PARANOIA [None]
